FAERS Safety Report 9870172 (Version 1)
Quarter: 2014Q1

REPORT INFORMATION
  Report Type: Spontaneous
  Country: US (occurrence: None)
  Receive Date: 20140204
  Receipt Date: 20140204
  Transmission Date: 20141002
  Serious: Yes (Disabling)
  Sender: FDA-Public Use
  Company Number: None

PATIENT
  Sex: Female

DRUGS (1)
  1. NAPROXEN SODIUM [Suspect]
     Indication: MIGRAINE
     Dosage: 2 PILLS  TWICE DAILY  MOUTH
     Route: 048

REACTIONS (9)
  - Dizziness [None]
  - Vertigo [None]
  - Nausea [None]
  - Fatigue [None]
  - Fall [None]
  - Dysstasia [None]
  - Balance disorder [None]
  - Somnolence [None]
  - Stress [None]
